FAERS Safety Report 5064853-9 (Version None)
Quarter: 2006Q3

REPORT INFORMATION
  Report Type: 
  Country: None (occurrence: None)
  Receive Date: 20060725
  Receipt Date: 20060712
  Transmission Date: 20061208
  Serious: Yes (Hospitalization)
  Sender: FDA-Public Use
  Company Number: 2006077333

PATIENT

DRUGS (3)
  1. SERTRALINE [Suspect]
     Indication: ILL-DEFINED DISORDER
  2. RIFAMPICIN [Suspect]
     Indication: TUBERCULOSIS
  3. PYRAZINAMIDE [Suspect]
     Indication: TUBERCULOSIS

REACTIONS (2)
  - HEPATIC TRAUMA [None]
  - HEPATITIS [None]
